FAERS Safety Report 5266299-7 (Version None)
Quarter: 2007Q1

REPORT INFORMATION
  Report Type: 
  Country: None (occurrence: None)
  Receive Date: 20070315
  Receipt Date: 20070309
  Transmission Date: 20070707
  Serious: Yes (Hospitalization)
  Sender: FDA-Public Use
  Company Number: JP-ROCHE-483160

PATIENT
  Age: 66 Year
  Sex: Male

DRUGS (6)
  1. LUPRAC [Suspect]
     Route: 048
     Dates: start: 20030421, end: 20031114
  2. PIRETANIDE [Concomitant]
     Indication: OEDEMA
     Dosage: DRUG WAS PRESCRIBED IN '2002 FALL'
     Dates: end: 20020615
  3. CHEMOTHERAPY NOS [Concomitant]
  4. FUROSEMIDE [Concomitant]
     Dates: start: 20030215
  5. LENDORMIN [Concomitant]
  6. THYRADIN S [Concomitant]
     Dates: start: 20030410

REACTIONS (1)
  - VITAMIN B1 DEFICIENCY [None]
